FAERS Safety Report 20238965 (Version 1)
Quarter: 2021Q4

REPORT INFORMATION
  Report Type: Spontaneous
  Country: US (occurrence: None)
  Receive Date: 20211227
  Receipt Date: 20211227
  Transmission Date: 20220303
  Serious: Yes (Hospitalization)
  Sender: FDA-Public Use
  Company Number: None

PATIENT
  Age: 73 Year
  Sex: Male
  Weight: 83 kg

DRUGS (1)
  1. WARFARIN [Suspect]
     Active Substance: WARFARIN
     Indication: Atrial fibrillation
     Dates: start: 20211010, end: 20211023

REACTIONS (6)
  - Haematochezia [None]
  - Diverticulum [None]
  - Haemorrhoids [None]
  - Haemoglobin decreased [None]
  - International normalised ratio increased [None]
  - Thrombosis [None]

NARRATIVE: CASE EVENT DATE: 20211023
